FAERS Safety Report 9854166 (Version 1)
Quarter: 2014Q1

REPORT INFORMATION
  Report Type: Spontaneous
  Country: BE (occurrence: BE)
  Receive Date: 20140130
  Receipt Date: 20140130
  Transmission Date: 20141002
  Serious: Yes (Life-Threatening, Hospitalization)
  Sender: FDA-Public Use
  Company Number: BE-JNJFOC-20140111192

PATIENT
  Sex: Male

DRUGS (1)
  1. SINUTAB FORTE [Suspect]
     Indication: PRODUCT USED FOR UNKNOWN INDICATION
     Dosage: 500/60 MG
     Route: 048

REACTIONS (3)
  - Myocardial infarction [Unknown]
  - Overdose [Unknown]
  - Malaise [Unknown]
